FAERS Safety Report 23439927 (Version 1)
Quarter: 2024Q1

REPORT INFORMATION
  Report Type: Spontaneous
  Country: FR (occurrence: FR)
  Receive Date: 20240124
  Receipt Date: 20240124
  Transmission Date: 20240409
  Serious: Yes (Disabling)
  Sender: FDA-Public Use
  Company Number: None

PATIENT
  Age: 6 Year
  Sex: Male
  Weight: 16.5 kg

DRUGS (19)
  1. TOPOTECAN HYDROCHLORIDE [Suspect]
     Active Substance: TOPOTECAN HYDROCHLORIDE
     Indication: Neuroblastoma
     Dosage: 0.5 MG, 1X/DAY, 4 MG/4ML
     Route: 042
     Dates: start: 20231212, end: 20231217
  2. DINUTUXIMAB BETA [Suspect]
     Active Substance: DINUTUXIMAB BETA
     Indication: Neuroblastoma
     Dosage: 6.5 MG, 1X/DAY
     Route: 042
     Dates: start: 20231212, end: 20231216
  3. DINUTUXIMAB BETA [Suspect]
     Active Substance: DINUTUXIMAB BETA
     Dosage: 6.5 MG, 1X/DAY
     Route: 042
     Dates: start: 20231217, end: 20231221
  4. ROXITHROMYCIN [Suspect]
     Active Substance: ROXITHROMYCIN
     Dosage: 100 MG, 1X/DAY
     Route: 048
     Dates: start: 20231215, end: 20231225
  5. TEMOZOLOMIDE [Suspect]
     Active Substance: TEMOZOLOMIDE
     Indication: Neuroblastoma
     Dosage: 100 MG, 1X/DAY
     Route: 048
     Dates: start: 20231212, end: 20231217
  6. FUROSEMIDE [Suspect]
     Active Substance: FUROSEMIDE
     Indication: Oedema
     Dosage: 8 MG, 1X/DAY,  20 MG/2 ML
     Route: 042
     Dates: start: 20231213, end: 20231213
  7. ALBUTEROL [Concomitant]
     Active Substance: ALBUTEROL
     Dosage: 2.5MG/2.5ML
  8. RIVOTRIL [Concomitant]
     Active Substance: CLONAZEPAM
  9. BACTRIM [Concomitant]
     Active Substance: SULFAMETHOXAZOLE\TRIMETHOPRIM
  10. IPRATROPIUM [Concomitant]
     Active Substance: IPRATROPIUM
     Dosage: 0.5 MG/2 ML
  11. NEFOPAM HYDROCHLORIDE [Concomitant]
     Active Substance: NEFOPAM HYDROCHLORIDE
  12. POLARAMINE [Concomitant]
     Active Substance: DEXCHLORPHENIRAMINE MALEATE
  13. AMOXICILLIN [Concomitant]
     Active Substance: AMOXICILLIN
     Dosage: 500 MG/5 ML
  14. MORPHINE [Concomitant]
     Active Substance: MORPHINE
  15. AMITRIPTYLINE HYDROCHLORIDE [Concomitant]
     Active Substance: AMITRIPTYLINE HYDROCHLORIDE
  16. ACETAMINOPHEN [Concomitant]
     Active Substance: ACETAMINOPHEN
  17. ONDANSETRON [Concomitant]
     Active Substance: ONDANSETRON
  18. GABAPENTIN [Concomitant]
     Active Substance: GABAPENTIN
  19. DEXAMETHASONE [Concomitant]
     Active Substance: DEXAMETHASONE

REACTIONS (1)
  - Hypoacusis [Recovering/Resolving]

NARRATIVE: CASE EVENT DATE: 20231201
